FAERS Safety Report 9026084 (Version 1)
Quarter: 2013Q1

REPORT INFORMATION
  Report Type: Report from Study
  Country: US (occurrence: US)
  Receive Date: 20130122
  Receipt Date: 20130122
  Transmission Date: 20140127
  Serious: Yes (Hospitalization)
  Sender: FDA-Public Use
  Company Number: US-ROCHE-1180127

PATIENT
  Age: 55 Year
  Sex: Female
  Weight: 111.23 kg

DRUGS (6)
  1. TOCILIZUMAB [Suspect]
     Indication: RHEUMATOID ARTHRITIS
     Route: 065
     Dates: start: 20120823
  2. METHOTREXATE [Concomitant]
     Route: 048
  3. FOLIC ACID [Concomitant]
     Route: 048
  4. EFFEXOR [Concomitant]
     Route: 048
  5. HYDROCODONE BITARTRATE [Concomitant]
     Indication: PAIN
     Dosage: 10/650 AS REQUIRED
     Route: 065
  6. LEVOTHYROXIN [Concomitant]
     Route: 048

REACTIONS (5)
  - Intestinal perforation [Recovered/Resolved with Sequelae]
  - Diarrhoea [Recovered/Resolved with Sequelae]
  - Abdominal pain [Recovered/Resolved with Sequelae]
  - Vomiting [Recovered/Resolved with Sequelae]
  - Abdominal pain [Recovered/Resolved with Sequelae]
